FAERS Safety Report 10538054 (Version 1)
Quarter: 2014Q4

REPORT INFORMATION
  Report Type: Spontaneous
  Country: FR (occurrence: FR)
  Receive Date: 20141023
  Receipt Date: 20141023
  Transmission Date: 20150529
  Serious: Yes (Other)
  Sender: FDA-Public Use
  Company Number: FR-009507513-1410FRA008011

PATIENT
  Sex: Male
  Weight: 70 kg

DRUGS (2)
  1. COZAAR [Suspect]
     Active Substance: LOSARTAN POTASSIUM
     Indication: HYPERTENSION
     Dosage: HALF A TABLET OF 50 MG; TOTAL DAILY DOSE 25 MG
     Route: 048
     Dates: start: 2006, end: 2009
  2. COZAAR [Suspect]
     Active Substance: LOSARTAN POTASSIUM
     Indication: HYPERTENSION
     Dosage: 1 DF DAILY; TOTAL DAILY DOSE 50 MG
     Route: 048
     Dates: start: 2012

REACTIONS (4)
  - Tendonitis [Unknown]
  - Tendon rupture [Unknown]
  - Prostatic operation [Unknown]
  - Prostate cancer [Unknown]

NARRATIVE: CASE EVENT DATE: 2009
